FAERS Safety Report 7445397-3 (Version None)
Quarter: 2011Q2

REPORT INFORMATION
  Report Type: 
  Country: None (occurrence: None)
  Receive Date: 20110427
  Receipt Date: 20110427
  Transmission Date: 20111010
  Serious: No
  Sender: FDA-Public Use
  Company Number: None

PATIENT
  Sex: Female
  Weight: 45.9 kg

DRUGS (3)
  1. VINCRISTINE SULFATE [Suspect]
     Dosage: 4 MG
     Dates: end: 20110116
  2. METHOTREXATE [Suspect]
     Dosage: 155 MG
     Dates: end: 20110106
  3. ONCASPAR [Suspect]
     Dosage: 3550 IU
     Dates: end: 20110107

REACTIONS (5)
  - CANDIDIASIS [None]
  - MUCOSAL INFLAMMATION [None]
  - RENAL FAILURE [None]
  - BLOOD BILIRUBIN INCREASED [None]
  - BLOOD ALBUMIN DECREASED [None]
